FAERS Safety Report 6588822-2 (Version None)
Quarter: 2010Q1

REPORT INFORMATION
  Report Type: 
  Country: None (occurrence: None)
  Receive Date: 20100218
  Receipt Date: 20091002
  Transmission Date: 20100710
  Serious: Yes (Hospitalization)
  Sender: FDA-Public Use
  Company Number: A0776250A

PATIENT
  Sex: Male
  Weight: 58 kg

DRUGS (10)
  1. LAPATINIB [Suspect]
     Dosage: 1500MG PER DAY
     Route: 048
  2. CISPLATIN [Suspect]
     Dosage: 100MGM2 CYCLIC
     Route: 042
     Dates: start: 20090211
  3. RADIOTHERAPY [Suspect]
     Dosage: 6GY PER DAY
     Route: 061
     Dates: start: 20090211
  4. DURAGESIC-100 [Concomitant]
     Dosage: 50U TWO TIMES PER WEEK
     Route: 062
     Dates: start: 20090306
  5. ONDANSETRON [Concomitant]
     Indication: VOMITING
     Dosage: 8MG THREE TIMES PER DAY
     Route: 048
     Dates: start: 20090310
  6. ESPIDIFEN [Concomitant]
     Indication: PAIN
     Dosage: 1SAC THREE TIMES PER DAY
     Route: 048
     Dates: start: 20090225
  7. ACIPHEX [Concomitant]
     Indication: PROPHYLAXIS
     Dosage: 1TAB PER DAY
     Route: 048
     Dates: start: 20090225
  8. MOVICOL [Concomitant]
     Indication: CONSTIPATION
     Dosage: 1SAC THREE TIMES PER DAY
     Route: 048
     Dates: start: 20090225
  9. GELCLAIR [Concomitant]
     Dosage: 1U THREE TIMES PER DAY
     Route: 048
     Dates: start: 20090225
  10. MYCOSTATIN [Concomitant]
     Dosage: 1U THREE TIMES PER DAY
     Route: 048
     Dates: start: 20090225

REACTIONS (5)
  - APHASIA [None]
  - CEREBRAL ISCHAEMIA [None]
  - HEMIPLEGIA [None]
  - MUSCULAR WEAKNESS [None]
  - RESPIRATORY TRACT INFECTION [None]
